FAERS Safety Report 8286186-X (Version None)
Quarter: 2012Q2

REPORT INFORMATION
  Report Type: 
  Country: None (occurrence: None)
  Receive Date: 20120416
  Receipt Date: 20120409
  Transmission Date: 20120825
  Serious: Yes (Hospitalization)
  Sender: FDA-Public Use
  Company Number: US-AMGEN-USASP2012022562

PATIENT
  Age: 64 Year
  Sex: Female

DRUGS (1)
  1. ENBREL [Suspect]
     Indication: RHEUMATOID ARTHRITIS
     Dosage: 50 MG, QWK
     Dates: start: 20101004, end: 20110801

REACTIONS (4)
  - PAIN [None]
  - INTERVERTEBRAL DISC PROTRUSION [None]
  - BACK DISORDER [None]
  - SPINAL OPERATION [None]
